FAERS Safety Report 7707277-5 (Version None)
Quarter: 2011Q3

REPORT INFORMATION
  Report Type: 
  Country: None (occurrence: None)
  Receive Date: 20110824
  Receipt Date: 20110816
  Transmission Date: 20111222
  Serious: Yes (Other)
  Sender: FDA-Public Use
  Company Number: PHEH2011US01938

PATIENT
  Age: 62 Year
  Sex: Male

DRUGS (2)
  1. ORAL ANTIDIABETICS [Concomitant]
  2. TASIGNA [Suspect]
     Indication: CHRONIC MYELOID LEUKAEMIA
     Dosage: 800 MG, BID
     Route: 048

REACTIONS (2)
  - PANCREATIC DISORDER [None]
  - LIVER FUNCTION TEST ABNORMAL [None]
